FAERS Safety Report 8252902 (Version 2)
Quarter: 2012Q4

REPORT INFORMATION
  Report Type: 
  Country: US (occurrence: US)
  Receive Date: 20111118
  Receipt Date: 20121023
  Transmission Date: 20130627
  Serious: No
  Sender: FDA-Public Use
  Company Number: US-AMGEN-USASP2011017464

PATIENT
  Age: 44 Year
  Sex: Female
  Weight: 51.25 kg

DRUGS (16)
  1. ENBREL [Suspect]
     Indication: PSORIATIC ARTHROPATHY
     Dosage: 50 mg, qwk
     Dates: start: 20110321, end: 20110425
  2. ENBREL [Suspect]
     Dosage: 50 mg, qwk
     Dates: start: 20110321, end: 20110425
  3. METHOTREXATE [Concomitant]
     Dosage: 6 mg, qwk
     Dates: start: 201011
  4. PERCOCET                           /00446701/ [Concomitant]
     Dosage: UNK
  5. HYDROCODEINE [Concomitant]
     Dosage: UNK
  6. KLONOPIN [Concomitant]
     Dosage: UNK
  7. CELEBREX [Concomitant]
     Dosage: UNK
  8. WELLBUTRIN [Concomitant]
     Dosage: UNK
  9. ZYRTEC [Concomitant]
     Dosage: UNK
  10. CALCIUM [Concomitant]
     Dosage: UNK
  11. LORAZEPAM [Concomitant]
     Dosage: UNK
  12. FOLIC ACID [Concomitant]
     Dosage: UNK
  13. NEURONTIN [Concomitant]
     Dosage: UNK
  14. CARDIZEM                           /00489701/ [Concomitant]
     Dosage: UNK
  15. PROVENTIL                          /00139501/ [Concomitant]
     Dosage: UNK
  16. SINGULAIR [Concomitant]
     Dosage: UNK

REACTIONS (12)
  - Pain in extremity [Not Recovered/Not Resolved]
  - Arthralgia [Not Recovered/Not Resolved]
  - Oedema peripheral [Not Recovered/Not Resolved]
  - Joint swelling [Not Recovered/Not Resolved]
  - Joint effusion [Not Recovered/Not Resolved]
  - Fatigue [Not Recovered/Not Resolved]
  - Hypersensitivity [Recovered/Resolved]
  - Injection site reaction [Recovered/Resolved]
  - Injection site pruritus [Recovered/Resolved]
  - Injection site pain [Recovered/Resolved]
  - Injection site recall reaction [Recovered/Resolved]
  - Injection site erythema [Recovered/Resolved]
